FAERS Safety Report 9062311 (Version 1)
Quarter: 2013Q1

REPORT INFORMATION
  Report Type: Spontaneous
  Country: US (occurrence: None)
  Receive Date: 20130122
  Receipt Date: 20130122
  Transmission Date: 20140127
  Serious: Yes (Death)
  Sender: FDA-Public Use
  Company Number: 1552999

PATIENT
  Age: 49 Year
  Sex: Male

DRUGS (4)
  1. DIAZEPAM (DIAZEPAM) [Suspect]
  2. METHAMPHETAMINE [Suspect]
  3. MUSCLE RELAXANTS [Suspect]
  4. ALPRAZOLAM [Suspect]

REACTIONS (3)
  - Drug abuse [None]
  - Poisoning [None]
  - Self-medication [None]
